FAERS Safety Report 9228253 (Version 1)
Quarter: 2013Q1

REPORT INFORMATION
  Report Type: Spontaneous
  Country: US (occurrence: None)
  Receive Date: 20121024
  Receipt Date: 20121024
  Transmission Date: 20140127
  Serious: Yes (Disabling, Other)
  Sender: FDA-Public Use
  Company Number: DSA_57863_2012

PATIENT
  Sex: Female
  Weight: 99.79 kg

DRUGS (5)
  1. WELLBUTRIN XL (NOT SPECIFIED) [Suspect]
     Indication: DEPRESSION
     Dosage: DF
     Route: 048
     Dates: start: 20120531
  2. CYMBALTA (NOT SPECIFIED) [Suspect]
     Indication: DEPRESSION
     Dosage: DF
     Route: 048
     Dates: start: 2008
  3. CLONIDINE [Concomitant]
  4. SIMVASTATIN [Concomitant]
  5. OMEPRAZOLE [Concomitant]

REACTIONS (4)
  - Depression [None]
  - Drug effect decreased [None]
  - Medication residue present [None]
  - Product quality issue [None]
